FAERS Safety Report 10202718 (Version 1)
Quarter: 2014Q2

REPORT INFORMATION
  Report Type: Spontaneous
  Country: GB (occurrence: GB)
  Receive Date: 20140528
  Receipt Date: 20140528
  Transmission Date: 20141212
  Serious: Yes (Hospitalization, Disabling, Other)
  Sender: FDA-Public Use
  Company Number: GB-PFIZER INC-2014143446

PATIENT
  Age: 39 Year
  Sex: Male
  Weight: 76.2 kg

DRUGS (2)
  1. LUSTRAL [Suspect]
     Indication: DEPRESSION
     Dosage: 50 MG, UNK
     Route: 048
  2. PREDNISOLONE [Concomitant]

REACTIONS (6)
  - Alcohol interaction [Unknown]
  - Syncope [Recovered/Resolved with Sequelae]
  - Loss of consciousness [Recovered/Resolved with Sequelae]
  - Skull fracture [Unknown]
  - Extradural haematoma [Unknown]
  - Subarachnoid haemorrhage [Unknown]
